FAERS Safety Report 18616129 (Version 1)
Quarter: 2020Q4

REPORT INFORMATION
  Report Type: Spontaneous
  Country: PL (occurrence: PL)
  Receive Date: 20201214
  Receipt Date: 20201214
  Transmission Date: 20210114
  Serious: Yes (Other)
  Sender: FDA-Public Use
  Company Number: NVSC2020PL326680

PATIENT
  Age: 54 Year
  Sex: Female

DRUGS (4)
  1. PANITUMUMAB [Suspect]
     Active Substance: PANITUMUMAB
     Indication: COLORECTAL CANCER METASTATIC
     Dosage: 360 MG
     Route: 065
     Dates: start: 20190917
  2. FOLINIC ACID [Concomitant]
     Active Substance: LEUCOVORIN
     Indication: COLORECTAL CANCER METASTATIC
     Dosage: UNK
     Route: 065
     Dates: start: 20190917
  3. OXALIPLATIN. [Suspect]
     Active Substance: OXALIPLATIN
     Indication: COLORECTAL CANCER METASTATIC
     Dosage: 138 MG
     Route: 065
     Dates: start: 20190917, end: 2020
  4. 5-FU [Concomitant]
     Active Substance: FLUOROURACIL
     Indication: COLORECTAL CANCER METASTATIC
     Dosage: 649 MG  (BOLUS DZ 1-2, 973 MG WLEW IV 22 GODZ DZ 1-2)
     Route: 065
     Dates: start: 20190917

REACTIONS (5)
  - Skin toxicity [Unknown]
  - Metastases to liver [Unknown]
  - Thrombocytopenia [Unknown]
  - Anaemia [Unknown]
  - Renal infarct [Unknown]
